FAERS Safety Report 7046902-1 (Version None)
Quarter: 2010Q4

REPORT INFORMATION
  Report Type: 
  Country: None (occurrence: None)
  Receive Date: 20101015
  Receipt Date: 20101006
  Transmission Date: 20110411
  Serious: Yes (Other)
  Sender: FDA-Public Use
  Company Number: GB-JNJFOC-20101001907

PATIENT
  Age: 43 Year
  Sex: Male
  Weight: 73.5 kg

DRUGS (3)
  1. REMICADE [Suspect]
     Indication: PSORIASIS
     Dosage: DOSE ^5MG^
     Route: 042
  2. REMICADE [Suspect]
     Dosage: DOSE ^5MG^
     Route: 042
  3. REMICADE [Suspect]
     Dosage: DOSE ^5MG^
     Route: 042

REACTIONS (1)
  - MYOCARDIAL INFARCTION [None]
